FAERS Safety Report 6960736-5 (Version None)
Quarter: 2010Q3

REPORT INFORMATION
  Report Type: 
  Country: None (occurrence: None)
  Receive Date: 20100901
  Receipt Date: 20100820
  Transmission Date: 20110219
  Serious: Yes (Other)
  Sender: FDA-Public Use
  Company Number: BR-PFIZER INC-2010103251

PATIENT
  Age: 54 Year
  Sex: Female
  Weight: 47 kg

DRUGS (5)
  1. CHAMPIX [Suspect]
     Indication: TOBACCO USER
     Dosage: 0.5 MG, 1X/DAY
     Route: 048
     Dates: start: 20100804, end: 20100801
  2. CHAMPIX [Suspect]
     Dosage: 0.5 MG, 2X/DAY
     Route: 048
     Dates: start: 20100801, end: 20100801
  3. CHAMPIX [Suspect]
     Dosage: 0.5 MG (HALF OF 1 TABLET)
     Route: 048
     Dates: start: 20100801, end: 20100801
  4. CHAMPIX [Suspect]
     Dosage: 1 MG
     Route: 048
     Dates: start: 20100801, end: 20100801
  5. CHAMPIX [Suspect]
     Dosage: 1 MG, 2X/DAY, EVERY 12 HOURS
     Route: 048
     Dates: start: 20100801, end: 20100818

REACTIONS (5)
  - ANXIETY [None]
  - BEDRIDDEN [None]
  - DEPRESSION [None]
  - HEART RATE INCREASED [None]
  - NERVOUSNESS [None]
